FAERS Safety Report 14335812 (Version 1)
Quarter: 2017Q4

REPORT INFORMATION
  Report Type: Spontaneous
  Country: CH (occurrence: CH)
  Receive Date: 20171229
  Receipt Date: 20171229
  Transmission Date: 20180321
  Serious: Yes (Hospitalization, Other)
  Sender: FDA-Public Use
  Company Number: CH-VISTAPHARM, INC.-VER201712-001280

PATIENT
  Age: 22 Year
  Sex: Male

DRUGS (24)
  1. PHENYTOIN. [Suspect]
     Active Substance: PHENYTOIN
  2. PHENYTOIN. [Suspect]
     Active Substance: PHENYTOIN
  3. PHENYTOIN. [Suspect]
     Active Substance: PHENYTOIN
  4. PERAMPANEL [Suspect]
     Active Substance: PERAMPANEL
     Indication: EPILEPSY
  5. PERAMPANEL [Suspect]
     Active Substance: PERAMPANEL
  6. CLONAZEPAM. [Concomitant]
     Active Substance: CLONAZEPAM
     Indication: EPILEPSY
  7. PHENYTOIN. [Suspect]
     Active Substance: PHENYTOIN
  8. CLONAZEPAM. [Concomitant]
     Active Substance: CLONAZEPAM
  9. OXCARBAZEPINE. [Concomitant]
     Active Substance: OXCARBAZEPINE
     Indication: EPILEPSY
  10. AMOXICLLIN [Concomitant]
     Indication: PNEUMONIA
  11. PHENYTOIN. [Suspect]
     Active Substance: PHENYTOIN
     Route: 040
  12. PHENYTOIN. [Suspect]
     Active Substance: PHENYTOIN
     Route: 040
  13. PHENYTOIN. [Suspect]
     Active Substance: PHENYTOIN
  14. PERAMPANEL [Suspect]
     Active Substance: PERAMPANEL
  15. PHENYTOIN. [Suspect]
     Active Substance: PHENYTOIN
     Indication: EPILEPSY
  16. PHENYTOIN. [Suspect]
     Active Substance: PHENYTOIN
  17. PHENYTOIN. [Suspect]
     Active Substance: PHENYTOIN
  18. PERAMPANEL [Suspect]
     Active Substance: PERAMPANEL
  19. CLAVULANIC ACID [Concomitant]
     Active Substance: CLAVULANIC ACID
     Indication: PNEUMONIA
  20. PHENYTOIN. [Suspect]
     Active Substance: PHENYTOIN
  21. RETIGABINE [Concomitant]
     Active Substance: EZOGABINE
     Indication: EPILEPSY
  22. PHENYTOIN. [Suspect]
     Active Substance: PHENYTOIN
  23. ESOMEPRAZOLE [Concomitant]
     Active Substance: ESOMEPRAZOLE
  24. PROPOFOL. [Concomitant]
     Active Substance: PROPOFOL

REACTIONS (3)
  - Drug level decreased [Unknown]
  - Status epilepticus [Recovered/Resolved]
  - Drug interaction [Unknown]
